FAERS Safety Report 5255733-4 (Version None)
Quarter: 2007Q1

REPORT INFORMATION
  Report Type: 
  Country: None (occurrence: None)
  Receive Date: 20070305
  Receipt Date: 20070222
  Transmission Date: 20070707
  Serious: Yes (Hospitalization)
  Sender: FDA-Public Use
  Company Number: FR-PFIZER INC-2007014813

PATIENT
  Age: 62 Year
  Sex: Male

DRUGS (4)
  1. ALDACTONE [Suspect]
     Route: 048
  2. EPOETIN ALFA [Suspect]
     Dosage: TEXT:8 KU-FREQ:EVERY WEEK
     Route: 058
  3. LASIX [Suspect]
     Route: 048
  4. CORDARONE [Suspect]
     Route: 048

REACTIONS (1)
  - ENCEPHALOPATHY [None]
